FAERS Safety Report 7746300 (Version 2)
Quarter: 2014Q1

REPORT INFORMATION
  Report Type: Spontaneous
  Country: US (occurrence: None)
  Receive Date: 20101208
  Receipt Date: 20140124
  Transmission Date: 20141002
  Serious: Yes (Other)
  Sender: FDA-Public Use
  Company Number: 2010S1000541

PATIENT
  Age: 67 Year
  Sex: Male

DRUGS (6)
  1. PHOSPHOSODA FLAVOR NOT SPECIFIED [Suspect]
     Indication: COLONOSCOPY
     Dosage: 75 ML;TOTAL;PO
     Route: 048
     Dates: start: 20070921, end: 20070921
  2. METFORMIN [Concomitant]
  3. TRICOR [Concomitant]
  4. ALLOPURINOL (ALLOPURINOL) [Concomitant]
  5. PRAVACHOL (PRAVASTATIN SODIUM) [Concomitant]
  6. LISINOPRIL (LISINOPRIL) [Concomitant]

REACTIONS (4)
  - Renal failure acute [None]
  - Acute phosphate nephropathy [None]
  - Renal failure chronic [None]
  - Tubulointerstitial nephritis [None]
